FAERS Safety Report 7384975-7 (Version None)
Quarter: 2011Q1

REPORT INFORMATION
  Report Type: 
  Country: None (occurrence: None)
  Receive Date: 20110330
  Receipt Date: 20110304
  Transmission Date: 20110831
  Serious: No
  Sender: FDA-Public Use
  Company Number: US-B.I. PHARMACEUTICALS,INC./RIDGEFIELD-2011-BP-06852BP

PATIENT
  Sex: Female

DRUGS (7)
  1. MULTAQ [Concomitant]
     Indication: ATRIAL FIBRILLATION
  2. PREMARIN [Concomitant]
     Indication: HYSTERECTOMY
     Dosage: 0.3 MG
  3. METOPROLOL TARTRATE [Concomitant]
     Indication: HYPERTENSION
     Dosage: 25 MG
  4. PRADAXA [Suspect]
     Indication: ATRIAL FIBRILLATION
     Dosage: 300 MG
     Route: 048
     Dates: start: 20110201
  5. SULFA [Suspect]
     Indication: URINARY TRACT INFECTION
     Dates: start: 20110201, end: 20110201
  6. LISINOPRIL [Concomitant]
     Indication: HYPERTENSION
     Dosage: 5 MG
  7. LEVOXYL [Concomitant]
     Indication: HYPOTHYROIDISM
     Dosage: 0.88 MG

REACTIONS (5)
  - ARTHRALGIA [None]
  - MUSCULOSKELETAL PAIN [None]
  - HYPOTENSION [None]
  - PLANTAR FASCIITIS [None]
  - DYSPEPSIA [None]
